FAERS Safety Report 4965958-0 (Version None)
Quarter: 2006Q2

REPORT INFORMATION
  Report Type: 
  Country: None (occurrence: None)
  Receive Date: 20060403
  Receipt Date: 20060321
  Transmission Date: 20061013
  Serious: Yes (Hospitalization)
  Sender: FDA-Public Use
  Company Number: 2006040084

PATIENT
  Age: 58 Year
  Sex: Male
  Weight: 75 kg

DRUGS (6)
  1. SUTENT [Suspect]
     Indication: METASTATIC RENAL CELL CARCINOMA
     Dosage: 50 MG (50 MG, CYCLIC), ORAL
     Route: 048
     Dates: start: 20060208, end: 20060308
  2. GASTROSIL (METOCLOPRAMIDE HYDROCHLORIDE) [Concomitant]
  3. PANTOPRAZOLE SODIUM [Concomitant]
  4. NORVASC [Concomitant]
  5. METHOHEXAL (METOPROLOL TARTRATE) [Concomitant]
  6. PREDNISOLONE [Concomitant]

REACTIONS (2)
  - CONDITION AGGRAVATED [None]
  - VISION BLURRED [None]
